FAERS Safety Report 7802590-5 (Version None)
Quarter: 2011Q4

REPORT INFORMATION
  Report Type: 
  Country: None (occurrence: None)
  Receive Date: 20111007
  Receipt Date: 20110929
  Transmission Date: 20120403
  Serious: Yes (Hospitalization)
  Sender: FDA-Public Use
  Company Number: US-US-EMD SERONO, INC.-7086121

PATIENT
  Sex: Female

DRUGS (2)
  1. TYLENOL-500 [Concomitant]
     Indication: PREMEDICATION
     Route: 058
     Dates: start: 20110919
  2. REBIF [Suspect]
     Indication: PRODUCT USED FOR UNKNOWN INDICATION
     Route: 058
     Dates: start: 20110919

REACTIONS (4)
  - VOMITING [None]
  - MUSCLE SPASMS [None]
  - HYPERHIDROSIS [None]
  - GAIT DISTURBANCE [None]
